FAERS Safety Report 9442104 (Version 1)
Quarter: 2013Q3

REPORT INFORMATION
  Report Type: Spontaneous
  Country: JP (occurrence: JP)
  Receive Date: 20130806
  Receipt Date: 20130806
  Transmission Date: 20140515
  Serious: Yes (Hospitalization)
  Sender: FDA-Public Use
  Company Number: PHHY2013JP083708

PATIENT
  Sex: Female

DRUGS (3)
  1. DIOVAN [Suspect]
     Dosage: UNK UKN, UNK
     Route: 048
     Dates: start: 200702
  2. FLUITRAN [Concomitant]
     Dosage: 0.5 MG, DAILY
     Dates: start: 200702
  3. ZETIA [Concomitant]
     Dosage: UNK UKN, UNK

REACTIONS (2)
  - Spinal fracture [Unknown]
  - Alopecia [Unknown]
